FAERS Safety Report 6819561-8 (Version None)
Quarter: 2010Q2

REPORT INFORMATION
  Report Type: 
  Country: None (occurrence: None)
  Receive Date: 20100630
  Receipt Date: 20100531
  Transmission Date: 20101027
  Serious: Yes (Other)
  Sender: FDA-Public Use
  Company Number: 2010002538

PATIENT
  Age: 61 Year
  Sex: Female

DRUGS (3)
  1. TARCEVA [Suspect]
     Indication: PANCREATIC CARCINOMA
     Dosage: ORAL
     Route: 048
  2. GEMZAR [Suspect]
     Indication: PANCREATIC CARCINOMA
  3. ELOXATIN [Suspect]
     Indication: PANCREATIC CARCINOMA

REACTIONS (11)
  - BASOPHIL COUNT DECREASED [None]
  - EOSINOPHIL COUNT DECREASED [None]
  - HAEMATOCRIT DECREASED [None]
  - HAEMOGLOBIN DECREASED [None]
  - HEPATIC MASS [None]
  - LYMPHADENOPATHY [None]
  - LYMPHOCYTE COUNT DECREASED [None]
  - MALIGNANT NEOPLASM PROGRESSION [None]
  - PAIN [None]
  - PANCREATIC CARCINOMA [None]
  - RED BLOOD CELL COUNT DECREASED [None]
